FAERS Safety Report 6678240-0 (Version None)
Quarter: 2010Q2

REPORT INFORMATION
  Report Type: 
  Country: None (occurrence: None)
  Receive Date: 20100408
  Receipt Date: 20100408
  Transmission Date: 20101027
  Serious: Yes (Life-Threatening, Hospitalization)
  Sender: FDA-Public Use
  Company Number: None

PATIENT
  Age: 77 Year
  Sex: Male
  Weight: 105 kg

DRUGS (1)
  1. CARIMUNE [Suspect]
     Indication: HYPOGAMMAGLOBULINAEMIA
     Dosage: 30 GM ORDERED, PARTIALLY GIVEN ONCE IV DRIP
     Route: 041
     Dates: start: 20100328, end: 20100328

REACTIONS (10)
  - ATRIAL FIBRILLATION [None]
  - CHILLS [None]
  - HEPATIC ENZYME ABNORMAL [None]
  - HYPOGAMMAGLOBULINAEMIA [None]
  - PNEUMONIA [None]
  - RENAL FAILURE [None]
  - RESPIRATORY DISTRESS [None]
  - RESTLESSNESS [None]
  - SEPTIC SHOCK [None]
  - TREMOR [None]
